FAERS Safety Report 4265109-4 (Version None)
Quarter: 2004Q1

REPORT INFORMATION
  Report Type: 
  Country: None (occurrence: None)
  Receive Date: 20040106
  Receipt Date: 20040106
  Transmission Date: 20041129
  Serious: Yes (Life-Threatening)
  Sender: FDA-Public Use
  Company Number: None

PATIENT
  Age: 42 Year
  Sex: Male
  Weight: 99.7913 kg

DRUGS (1)
  1. PRAVACHOL [Suspect]
     Indication: BLOOD CHOLESTEROL INCREASED
     Dosage: 20 MG-40 MG 1 TABLET

REACTIONS (5)
  - FATIGUE [None]
  - HEPATIC ENZYME INCREASED [None]
  - MUSCLE CRAMP [None]
  - MUSCLE ENZYME INCREASED [None]
  - PAIN IN EXTREMITY [None]
